FAERS Safety Report 7052006-4 (Version None)
Quarter: 2010Q4

REPORT INFORMATION
  Report Type: 
  Country: None (occurrence: None)
  Receive Date: 20101019
  Receipt Date: 20101015
  Transmission Date: 20110411
  Serious: Yes (Death)
  Sender: FDA-Public Use
  Company Number: D0069152A

PATIENT
  Sex: Male
  Weight: 72.2 kg

DRUGS (5)
  1. TOPOTECAN [Suspect]
     Dosage: 1MG PER DAY
     Route: 065
     Dates: start: 20100901, end: 20100905
  2. NEBIVOLOL [Concomitant]
     Dosage: 5MG PER DAY
     Route: 065
     Dates: end: 20100921
  3. DIGITOXIN [Concomitant]
     Dosage: .07MG PER DAY
     Route: 065
     Dates: end: 20100921
  4. MARCUMAR [Concomitant]
     Route: 065
     Dates: end: 20100921
  5. NEULASTA [Concomitant]
     Dosage: 6MG PER DAY
     Route: 065
     Dates: start: 20100906, end: 20100906

REACTIONS (4)
  - ANAEMIA [None]
  - DEHYDRATION [None]
  - NEOPLASM PROGRESSION [None]
  - THROMBOCYTOPENIA [None]
